FAERS Safety Report 5714699-0 (Version None)
Quarter: 2008Q2

REPORT INFORMATION
  Report Type: 
  Country: None (occurrence: None)
  Receive Date: 20080423
  Receipt Date: 20080414
  Transmission Date: 20081010
  Serious: Yes (Hospitalization)
  Sender: FDA-Public Use
  Company Number: US-MERCK-0705USA04166

PATIENT
  Age: 63 Year
  Sex: Female

DRUGS (4)
  1. FOSAMAX [Suspect]
     Indication: OSTEOPOROSIS
     Route: 048
     Dates: start: 20050201, end: 20060101
  2. [THERAPY UNSPECIFIED] [Concomitant]
     Route: 065
     Dates: start: 20020101
  3. METOPROLOL [Concomitant]
     Route: 065
     Dates: start: 20020101
  4. COZAAR [Concomitant]
     Route: 065
     Dates: start: 20020101

REACTIONS (10)
  - ASTHMA [None]
  - BLOOD CHOLESTEROL INCREASED [None]
  - BREAST CANCER [None]
  - CARDIAC DISORDER [None]
  - DIABETES MELLITUS [None]
  - HORMONE THERAPY [None]
  - JAW DISORDER [None]
  - PAIN IN JAW [None]
  - RHEUMATOID ARTHRITIS [None]
  - TEMPOROMANDIBULAR JOINT SYNDROME [None]
